FAERS Safety Report 14448405 (Version 1)
Quarter: 2018Q1

REPORT INFORMATION
  Report Type: Spontaneous
  Country: US (occurrence: US)
  Receive Date: 20180126
  Receipt Date: 20180126
  Transmission Date: 20180509
  Serious: No
  Sender: FDA-Public Use
  Company Number: US-MYLANLABS-2016M1017661

PATIENT
  Age: 60 Year
  Sex: Female
  Weight: 125 kg

DRUGS (1)
  1. VANCOMYCIN HCL USP [Suspect]
     Active Substance: VANCOMYCIN HYDROCHLORIDE
     Indication: CELLULITIS
     Dosage: 2 G, BID
     Route: 042
     Dates: start: 20160315, end: 20160324

REACTIONS (1)
  - Drug level increased [Recovered/Resolved]
